FAERS Safety Report 16553296 (Version 3)
Quarter: 2021Q2

REPORT INFORMATION
  Report Type: Spontaneous
  Country: ES (occurrence: ES)
  Receive Date: 20190710
  Receipt Date: 20210616
  Transmission Date: 20210716
  Serious: Yes (Other)
  Sender: FDA-Public Use
  Company Number: ES-GILEAD-2019-0416993

PATIENT
  Age: 57 Year
  Sex: Female

DRUGS (4)
  1. GENVOYA [Suspect]
     Active Substance: COBICISTAT\ELVITEGRAVIR\EMTRICITABINE\TENOFOVIR ALAFENAMIDE FUMARATE
     Indication: HIV INFECTION
     Dosage: UNK
     Route: 065
     Dates: start: 20170214, end: 20190415
  2. PREDNISONE. [Interacting]
     Active Substance: PREDNISONE
     Indication: PRODUCT USED FOR UNKNOWN INDICATION
     Dosage: 30 MG, QD
     Route: 065
     Dates: start: 20190328
  3. ROSUVASTATIN. [Concomitant]
     Active Substance: ROSUVASTATIN
  4. FOSFOMYCIN [FOSFOMYCIN SODIUM] [Concomitant]
     Dosage: UNK, WEEKLY

REACTIONS (6)
  - Cushing^s syndrome [Unknown]
  - Tachycardia [Unknown]
  - Drug interaction [Unknown]
  - Fatigue [Unknown]
  - Joint effusion [Unknown]
  - Adrenal insufficiency [Recovered/Resolved]

NARRATIVE: CASE EVENT DATE: 20190615
